FAERS Safety Report 14318618 (Version 1)
Quarter: 2017Q4

REPORT INFORMATION
  Report Type: Spontaneous
  Country: US (occurrence: US)
  Receive Date: 20171222
  Receipt Date: 20171222
  Transmission Date: 20180321
  Serious: No
  Sender: FDA-Public Use
  Company Number: US-009507513-1712USA009266

PATIENT
  Age: 20 Year
  Sex: Female

DRUGS (2)
  1. NEXPLANON [Suspect]
     Active Substance: ETONOGESTREL
     Indication: METRORRHAGIA
     Dosage: 1 ROD
     Route: 059
     Dates: start: 201209
  2. NEXPLANON [Suspect]
     Active Substance: ETONOGESTREL
     Indication: CONTRACEPTION

REACTIONS (4)
  - Product use in unapproved indication [Unknown]
  - Device kink [Unknown]
  - Incorrect drug administration duration [Unknown]
  - Metrorrhagia [Unknown]
